FAERS Safety Report 8765556 (Version 1)
Quarter: 2012Q4

REPORT INFORMATION
  Report Type: 
  Country: US (occurrence: US)
  Receive Date: 20120903
  Receipt Date: 20120903
  Transmission Date: 20130627
  Serious: Yes (Death, Hospitalization, Other)
  Sender: FDA-Public Use
  Company Number: US-PFIZER INC-2012213175

PATIENT
  Age: 91 Year
  Sex: Male
  Weight: 103 kg

DRUGS (1)
  1. TORISEL [Suspect]
     Indication: RENAL CELL CARCINOMA
     Dosage: 20 mg, single (once)
     Dates: start: 20120806, end: 20120806

REACTIONS (5)
  - Death [Fatal]
  - Sepsis [Not Recovered/Not Resolved]
  - Stomatitis [Not Recovered/Not Resolved]
  - Pyrexia [Not Recovered/Not Resolved]
  - White blood cell count decreased [Not Recovered/Not Resolved]
